FAERS Safety Report 12475925 (Version 2)
Quarter: 2016Q3

REPORT INFORMATION
  Report Type: Spontaneous
  Country: US (occurrence: US)
  Receive Date: 20160617
  Receipt Date: 20160722
  Transmission Date: 20161109
  Serious: Yes (Hospitalization, Other)
  Sender: FDA-Public Use
  Company Number: US-UCBSA-2016015792

PATIENT
  Age: 38 Year
  Sex: Female
  Weight: 61 kg

DRUGS (6)
  1. BANZEL [Concomitant]
     Active Substance: RUFINAMIDE
     Indication: EPILEPSY
     Dosage: 200 MG, 2X/DAY (BID)
     Route: 048
  2. VIMPAT [Suspect]
     Active Substance: LACOSAMIDE
     Indication: SEIZURE
     Dosage: 50 MG, 2X/DAY (BID)
     Route: 048
     Dates: start: 20150807, end: 201508
  3. TRILEPTAL [Concomitant]
     Active Substance: OXCARBAZEPINE
     Indication: EPILEPSY
     Dosage: STRENGTH: 600 MG (1 AND 1/2 TABLET BID)
     Route: 048
  4. ZONEGRAN [Concomitant]
     Active Substance: ZONISAMIDE
     Indication: EPILEPSY
     Dosage: 100 MG 1 QAM AND 2 QPM
     Route: 048
  5. VIMPAT [Suspect]
     Active Substance: LACOSAMIDE
     Dosage: 100 MG, 2X/DAY (BID)
     Route: 048
     Dates: start: 20150822, end: 201508
  6. LORAZEPAM. [Concomitant]
     Active Substance: LORAZEPAM
     Indication: SEIZURE
     Dosage: 1 MG, AS NEEDED (PRN)

REACTIONS (1)
  - Seizure [Recovered/Resolved]

NARRATIVE: CASE EVENT DATE: 20150811
